FAERS Safety Report 14105201 (Version 2)
Quarter: 2018Q2

REPORT INFORMATION
  Report Type: Spontaneous
  Country: US (occurrence: US)
  Receive Date: 20171018
  Receipt Date: 20180419
  Transmission Date: 20180711
  Serious: Yes (Other)
  Sender: FDA-Public Use
  Company Number: US-MALLINCKRODT-T201704002

PATIENT
  Age: 41 Year
  Sex: Female

DRUGS (1)
  1. H.P. ACTHAR [Suspect]
     Active Substance: CORTICOTROPIN
     Indication: SARCOIDOSIS
     Dosage: UNK
     Route: 065
     Dates: start: 201511

REACTIONS (13)
  - Gait disturbance [Unknown]
  - Condition aggravated [Unknown]
  - Ventricular extrasystoles [Unknown]
  - Sarcoidosis [Unknown]
  - Pain [Unknown]
  - Joint injury [Unknown]
  - Myalgia [Unknown]
  - Adverse drug reaction [Unknown]
  - Loss of personal independence in daily activities [Unknown]
  - Swelling [Unknown]
  - Disturbance in attention [Unknown]
  - Weight decreased [Unknown]
  - Walking aid user [Unknown]

NARRATIVE: CASE EVENT DATE: 201605
